FAERS Safety Report 8778277 (Version 5)
Quarter: 2013Q2

REPORT INFORMATION
  Report Type: Spontaneous
  Country: US (occurrence: US)
  Receive Date: 20120912
  Receipt Date: 20130618
  Transmission Date: 20140414
  Serious: Yes (Hospitalization, Other)
  Sender: FDA-Public Use
  Company Number: US-ROCHE-1123984

PATIENT
  Age: 15 Year
  Sex: Female
  Weight: 43.13 kg

DRUGS (2)
  1. ACCUTANE [Suspect]
     Indication: ACNE
     Dosage: 20 MG, 40 MG
     Route: 065
     Dates: start: 20020404, end: 200207
  2. ACCUTANE [Suspect]
     Route: 065
     Dates: start: 200304, end: 200306

REACTIONS (4)
  - Colitis ulcerative [Unknown]
  - Crohn^s disease [Unknown]
  - Inflammatory bowel disease [Unknown]
  - Anxiety [Unknown]
